FAERS Safety Report 24527023 (Version 1)
Quarter: 2024Q4

REPORT INFORMATION
  Report Type: Report from Study
  Country: US (occurrence: US)
  Receive Date: 20241021
  Receipt Date: 20241021
  Transmission Date: 20250114
  Serious: Yes (Other)
  Sender: ALEXION PHARMACEUTICALS
  Company Number: US-AstraZeneca-CH-00723305A

PATIENT

DRUGS (1)
  1. CAPIVASERTIB [Suspect]
     Active Substance: CAPIVASERTIB
     Indication: Breast cancer female
     Dosage: 400 MILLIGRAM, BID  2 DOSAGE FORM BID , DURATION 4 DAYS, THEN 3 DAYS OFF EACH WEEK

REACTIONS (5)
  - Neuropathy peripheral [Unknown]
  - Pruritus [Unknown]
  - Skin discolouration [Unknown]
  - Nail discolouration [Unknown]
  - Haemorrhage [Unknown]
